FAERS Safety Report 25462756 (Version 2)
Quarter: 2025Q2

REPORT INFORMATION
  Report Type: Spontaneous
  Country: US (occurrence: US)
  Receive Date: 20250620
  Receipt Date: 20250626
  Transmission Date: 20250717
  Serious: No
  Sender: MYLAN
  Company Number: US-MYLANLABS-2025M1050392

PATIENT
  Sex: Male
  Weight: 104.33 kg

DRUGS (1)
  1. BREYNA [Suspect]
     Active Substance: BUDESONIDE\FORMOTEROL FUMARATE
     Indication: Asthma
     Dosage: 320/9 MICROGRAM, BID (TWO PUFF TWICE A DAY)
     Dates: start: 20250517, end: 20250602

REACTIONS (3)
  - Intentional product misuse [Unknown]
  - Device failure [Unknown]
  - Device issue [Unknown]
